FAERS Safety Report 9040515 (Version 1)
Quarter: 2013Q1

REPORT INFORMATION
  Report Type: Report from Study
  Country: US (occurrence: US)
  Receive Date: 20130129
  Receipt Date: 20130129
  Transmission Date: 20140127
  Serious: No
  Sender: FDA-Public Use
  Company Number: US-ABBOTT-12P-163-0891643-00

PATIENT
  Sex: Female
  Weight: 108.96 kg

DRUGS (13)
  1. HUMIRA 40 MG/ 0.8 ML PRE-FILLED SYRINGE [Suspect]
     Indication: RHEUMATOID ARTHRITIS
     Dates: start: 201111, end: 201112
  2. METHOTREXATE [Concomitant]
     Indication: RHEUMATOID ARTHRITIS
  3. FOLIC ACID [Concomitant]
     Indication: VITAMIN SUPPLEMENTATION
  4. CALCIUM [Concomitant]
     Indication: PRODUCT USED FOR UNKNOWN INDICATION
  5. VITAMIN D [Concomitant]
     Indication: PRODUCT USED FOR UNKNOWN INDICATION
  6. CYMBALTA [Concomitant]
     Indication: DEPRESSION
  7. CYMBALTA [Concomitant]
     Indication: FIBROMYALGIA
  8. PREMARIN [Concomitant]
     Indication: HORMONE REPLACEMENT THERAPY
  9. PREDNISONE [Concomitant]
     Indication: RHEUMATOID ARTHRITIS
  10. MULTIVITAMINS [Concomitant]
     Indication: PRODUCT USED FOR UNKNOWN INDICATION
  11. VITAMIN C [Concomitant]
     Indication: PRODUCT USED FOR UNKNOWN INDICATION
  12. BENAZEPRIL [Concomitant]
     Indication: HYPERTENSION
  13. LASIX [Concomitant]
     Indication: HYPERTENSION

REACTIONS (3)
  - Pharyngeal oedema [Recovered/Resolved]
  - Eye swelling [Recovered/Resolved]
  - Dyspnoea [Recovered/Resolved]
